FAERS Safety Report 5577866-5 (Version None)
Quarter: 2007Q4

REPORT INFORMATION
  Report Type: 
  Country: None (occurrence: None)
  Receive Date: 20071231
  Receipt Date: 20071221
  Transmission Date: 20080405
  Serious: Yes (Death, Hospitalization)
  Sender: FDA-Public Use
  Company Number: JP-SANOFI-SYNTHELABO-A01200713683

PATIENT
  Age: 70 Year
  Sex: Male
  Weight: 60 kg

DRUGS (7)
  1. ARTIST [Concomitant]
     Indication: DRUG USE FOR UNKNOWN INDICATION
     Route: 065
     Dates: start: 20070111, end: 20071105
  2. WARFARIN SODIUM [Concomitant]
     Indication: DRUG USE FOR UNKNOWN INDICATION
     Route: 065
     Dates: start: 20071105, end: 20071129
  3. SUNRYTHM [Concomitant]
     Indication: DRUG USE FOR UNKNOWN INDICATION
     Route: 065
     Dates: start: 20071105, end: 20071129
  4. ASPIRIN [Concomitant]
     Indication: DRUG USE FOR UNKNOWN INDICATION
     Route: 065
     Dates: start: 20071105, end: 20071129
  5. OMEPRAL [Suspect]
     Indication: DRUG USE FOR UNKNOWN INDICATION
     Route: 065
     Dates: start: 20071009, end: 20071105
  6. PLAVIX [Suspect]
     Indication: TRANSIENT ISCHAEMIC ATTACK
     Route: 048
     Dates: start: 20070131, end: 20071009
  7. PLAVIX [Suspect]
     Route: 048
     Dates: start: 20071105, end: 20071129

REACTIONS (3)
  - CROSS SENSITIVITY REACTION [None]
  - GASTRIC ULCER HAEMORRHAGE [None]
  - STEVENS-JOHNSON SYNDROME [None]
